FAERS Safety Report 5729283-2 (Version None)
Quarter: 2008Q2

REPORT INFORMATION
  Report Type: 
  Country: None (occurrence: None)
  Receive Date: 20080501
  Receipt Date: 20080418
  Transmission Date: 20081010
  Serious: Yes (Death)
  Sender: FDA-Public Use
  Company Number: 2008BI010691

PATIENT
  Age: 59 Year
  Sex: Female

DRUGS (5)
  1. TYSABRI [Suspect]
  2. AVONEX [Concomitant]
  3. COPAXONE [Concomitant]
  4. NOVANTRONE [Concomitant]
  5. REBIF [Concomitant]

REACTIONS (1)
  - DEATH [None]
